FAERS Safety Report 11554120 (Version 1)
Quarter: 2015Q3

REPORT INFORMATION
  Report Type: Spontaneous
  Country: US (occurrence: US)
  Receive Date: 20150925
  Receipt Date: 20150925
  Transmission Date: 20151125
  Serious: No
  Sender: FDA-Public Use
  Company Number: US-PFIZER INC-2015316172

PATIENT
  Age: 92 Year
  Sex: Female
  Weight: 55.7 kg

DRUGS (11)
  1. HYZAAR [Concomitant]
     Active Substance: HYDROCHLOROTHIAZIDE\LOSARTAN POTASSIUM
     Dosage: UNK, 2X/DAY (100-12.5 MG ORAL TABLET) SHE TOOK 0.5 TABS 2 TIMES DAILY
     Route: 048
  2. ALEVE [Concomitant]
     Active Substance: NAPROXEN SODIUM
     Dosage: 220 MG, AS NEEDED
     Route: 048
  3. BENADRYL ALLERGY ORAL SOLUTION [Concomitant]
     Dosage: UNK, DAILY (AT BEDTIME)
     Route: 048
  4. AROMASIN [Suspect]
     Active Substance: EXEMESTANE
     Indication: BREAST CANCER METASTATIC
     Dosage: 25 MG, DAILY (AFTER BREAKFAST)
     Dates: start: 20111025
  5. VITAMIN D3 [Concomitant]
     Active Substance: CHOLECALCIFEROL
     Dosage: 1 DF, DAILY
     Route: 048
  6. SYMBICORT [Concomitant]
     Active Substance: BUDESONIDE\FORMOTEROL FUMARATE DIHYDRATE
     Dosage: 1 DF, AS NEEDED
  7. NASACORT AQ [Concomitant]
     Active Substance: TRIAMCINOLONE ACETONIDE
     Dosage: 55 ?G, AS NEEDED (1 SPRAY IN EACH NOSTRIL 1 TIME DAILY)
  8. NEURONTIN [Suspect]
     Active Substance: GABAPENTIN
     Dosage: 100 MG, 2X/DAY
     Route: 048
  9. CENTRUM SILVER [Concomitant]
     Active Substance: VITAMINS
     Dosage: 1 DF, DAILY
     Route: 048
  10. CITRUCEL [Concomitant]
     Active Substance: METHYLCELLULOSE (4000 MPA.S)
     Dosage: 500 MG, DAILY
     Route: 048
  11. RESTORIL [Concomitant]
     Active Substance: TEMAZEPAM
     Dosage: 15 MG, DAILY (DAILY AT BEDTIME)

REACTIONS (4)
  - Disease progression [Unknown]
  - Breast cancer metastatic [Unknown]
  - Weight decreased [Unknown]
  - Cough [Unknown]
